FAERS Safety Report 5123317-4 (Version None)
Quarter: 2006Q4

REPORT INFORMATION
  Report Type: 
  Country: None (occurrence: None)
  Receive Date: 20061005
  Receipt Date: 20060925
  Transmission Date: 20070319
  Serious: Yes (Other)
  Sender: FDA-Public Use
  Company Number: 2006-02480

PATIENT
  Age: 48 Year
  Sex: Female

DRUGS (3)
  1. VELCADE [Suspect]
     Indication: LEUKAEMIA PLASMACYTIC
  2. ADRIAMYCIN PFS [Concomitant]
  3. DEXAMETHASONE TAB [Concomitant]

REACTIONS (8)
  - ASTHENIA [None]
  - CONSTIPATION [None]
  - INFECTION [None]
  - NAUSEA [None]
  - NEUTROPENIA [None]
  - OFF LABEL USE [None]
  - RENAL TUBULAR NECROSIS [None]
  - THROMBOCYTOPENIA [None]
